FAERS Safety Report 4559559-6 (Version None)
Quarter: 2005Q1

REPORT INFORMATION
  Report Type: 
  Country: None (occurrence: None)
  Receive Date: 20050124
  Receipt Date: 20050113
  Transmission Date: 20050727
  Serious: Yes (Other)
  Sender: FDA-Public Use
  Company Number: US-JNJFOC-20050103409

PATIENT
  Sex: Male

DRUGS (6)
  1. INFLIXIMAB [Suspect]
     Indication: RHEUMATOID ARTHRITIS
     Route: 042
  2. FOLIC ACID [Concomitant]
  3. TAGAMET [Concomitant]
  4. TYLENOL [Concomitant]
  5. METHOTREXATE [Concomitant]
  6. VITAMIN E [Concomitant]

REACTIONS (1)
  - MALIGNANT MELANOMA [None]
